FAERS Safety Report 9394601 (Version 2)
Quarter: 2013Q3

REPORT INFORMATION
  Report Type: Report from Study
  Country: AU (occurrence: AU)
  Receive Date: 20130711
  Receipt Date: 20130808
  Transmission Date: 20140515
  Serious: Yes (Hospitalization, Disabling, Other)
  Sender: FDA-Public Use
  Company Number: PHHY2013AU073414

PATIENT
  Age: 55 Year
  Sex: Female

DRUGS (3)
  1. ACLASTA [Suspect]
     Dosage: 5 MG
     Route: 042
     Dates: start: 20120716
  2. ANTIHYPERTENSIVE DRUGS [Concomitant]
     Indication: HYPERTENSION
     Dosage: UNK UKN, UNK
  3. LIPID MODIFYING AGENTS [Concomitant]
     Indication: HYPERLIPIDAEMIA
     Dosage: UNK UKN, UNK

REACTIONS (5)
  - Ischaemic stroke [Recovered/Resolved with Sequelae]
  - Motor dysfunction [Unknown]
  - Aphasia [Unknown]
  - Balance disorder [Unknown]
  - Coordination abnormal [Unknown]
